FAERS Safety Report 9179630 (Version 2)
Quarter: 2013Q2

REPORT INFORMATION
  Report Type: Spontaneous
  Country: GT (occurrence: GT)
  Receive Date: 20121029
  Receipt Date: 20130624
  Transmission Date: 20140414
  Serious: Yes (Death, Hospitalization, Other)
  Sender: FDA-Public Use
  Company Number: GT-JNJFOC-20121012548

PATIENT
  Age: 56 Year
  Sex: Male

DRUGS (3)
  1. STELARA [Suspect]
     Indication: PSORIASIS
     Route: 058
     Dates: end: 20120919
  2. OFLOXACIN [Concomitant]
     Route: 065
  3. CLINDAMYCIN [Concomitant]
     Route: 065

REACTIONS (3)
  - Oedema peripheral [Fatal]
  - Erythrodermic psoriasis [Fatal]
  - Multi-organ failure [Fatal]
